FAERS Safety Report 16210555 (Version 1)
Quarter: 2019Q2

REPORT INFORMATION
  Report Type: Spontaneous
  Country: US (occurrence: US)
  Receive Date: 20190314
  Receipt Date: 20190314
  Transmission Date: 20190711
  Serious: Yes (Hospitalization)
  Sender: FDA-Public Use
  Company Number: None

PATIENT
  Age: 70 Year
  Sex: Female

DRUGS (12)
  1. IBRANDRONATE [Concomitant]
  2. IBU [Concomitant]
     Active Substance: IBUPROFEN
  3. OXYCODONE AND ACETAMINOPHEN [Concomitant]
     Active Substance: ACETAMINOPHEN\OXYCODONE HYDROCHLORIDE
  4. VITAMIN D NOS [Concomitant]
     Active Substance: VITAMIN D NOS
  5. PROMACTA [Suspect]
     Active Substance: ELTROMBOPAG OLAMINE
     Indication: THROMBOCYTOPENIA
     Route: 048
     Dates: start: 20100429
  6. AMBIEN CR [Concomitant]
     Active Substance: ZOLPIDEM TARTRATE
  7. CIPROFLOXACIN. [Concomitant]
     Active Substance: CIPROFLOXACIN
  8. METOPROL SUC [Concomitant]
  9. BONIVA [Concomitant]
     Active Substance: IBANDRONATE SODIUM
  10. DILTIAZEM. [Concomitant]
     Active Substance: DILTIAZEM
  11. PROPO-N/APAP [Concomitant]
  12. SERTRALINE [Concomitant]
     Active Substance: SERTRALINE HYDROCHLORIDE

REACTIONS (1)
  - Platelet count decreased [None]

NARRATIVE: CASE EVENT DATE: 201811
